FAERS Safety Report 5494312-0 (Version None)
Quarter: 2007Q4

REPORT INFORMATION
  Report Type: 
  Country: None (occurrence: None)
  Receive Date: 20071015
  Receipt Date: 20070802
  Transmission Date: 20080405
  Serious: No
  Sender: FDA-Public Use
  Company Number: 2007SP002730

PATIENT
  Age: 51 Year
  Sex: Female
  Weight: 63.5036 kg

DRUGS (6)
  1. LUNESTA [Suspect]
     Indication: INSOMNIA
     Dosage: 2 MG; HS; ORAL
     Route: 048
     Dates: start: 20070801
  2. ESTRADIOL [Concomitant]
  3. WELLBUTRIN [Concomitant]
  4. CIPROFLOXACIN [Concomitant]
  5. NASONEX [Concomitant]
  6. VALSARTAN [Concomitant]

REACTIONS (4)
  - ABDOMINAL PAIN [None]
  - ABNORMAL DREAMS [None]
  - HEADACHE [None]
  - INITIAL INSOMNIA [None]
